FAERS Safety Report 13108463 (Version 1)
Quarter: 2017Q1

REPORT INFORMATION
  Report Type: Spontaneous
  Country: US (occurrence: US)
  Receive Date: 20170111
  Receipt Date: 20170111
  Transmission Date: 20170428
  Serious: No
  Sender: FDA-Public Use
  Company Number: None

PATIENT
  Age: 34 Year
  Sex: Female
  Weight: 58.5 kg

DRUGS (1)
  1. CANASA [Suspect]
     Active Substance: MESALAMINE
     Indication: COLITIS ULCERATIVE
     Route: 054
     Dates: start: 20170101, end: 20170109

REACTIONS (3)
  - Haemorrhage [None]
  - Condition aggravated [None]
  - Product quality issue [None]

NARRATIVE: CASE EVENT DATE: 20170108
